FAERS Safety Report 9805017 (Version 1)
Quarter: 2014Q1

REPORT INFORMATION
  Report Type: Report from Study
  Country: US (occurrence: US)
  Receive Date: 20140109
  Receipt Date: 20140109
  Transmission Date: 20141002
  Serious: Yes (Death, Hospitalization)
  Sender: FDA-Public Use
  Company Number: US-ROCHE-1329979

PATIENT
  Sex: Female
  Weight: 63.56 kg

DRUGS (6)
  1. AVASTIN [Suspect]
     Indication: NEUROENDOCRINE CARCINOMA
     Route: 042
     Dates: start: 20101201, end: 20101201
  2. AVASTIN [Suspect]
     Indication: CARCINOID SYNDROME
     Route: 065
     Dates: start: 20080416, end: 2008
  3. AVASTIN [Suspect]
     Indication: MALIGNANT LYMPHOID NEOPLASM
  4. RAD001 [Concomitant]
     Route: 065
     Dates: start: 20080416, end: 2008
  5. TEMODAR [Concomitant]
  6. SANDOSTATIN [Concomitant]

REACTIONS (18)
  - Neuroendocrine carcinoma [Fatal]
  - Diarrhoea [Unknown]
  - Malnutrition [Unknown]
  - Musculoskeletal pain [Unknown]
  - Disease progression [Unknown]
  - Pain [Unknown]
  - Fatigue [Unknown]
  - Depression [Unknown]
  - Rhinitis allergic [Unknown]
  - Diarrhoea [Unknown]
  - Off label use [Unknown]
  - Thyroid neoplasm [Unknown]
  - Arthralgia [Unknown]
  - Insomnia [Unknown]
  - Ascites [Unknown]
  - Hepatomegaly [Unknown]
  - Cachexia [Unknown]
  - Anal fissure excision [Unknown]
